FAERS Safety Report 6719528-4 (Version None)
Quarter: 2010Q2

REPORT INFORMATION
  Report Type: 
  Country: None (occurrence: None)
  Receive Date: 20100510
  Receipt Date: 20100510
  Transmission Date: 20101027
  Serious: Yes (Hospitalization)
  Sender: FDA-Public Use
  Company Number: None

PATIENT
  Age: 50 Year
  Sex: Female
  Weight: 86.1834 kg

DRUGS (1)
  1. VYVANSE [Suspect]
     Dates: start: 20100213, end: 20100410

REACTIONS (5)
  - AGGRESSION [None]
  - AMNESIA [None]
  - ANGER [None]
  - MANIA [None]
  - SUICIDAL IDEATION [None]
